FAERS Safety Report 7389703-7 (Version None)
Quarter: 2011Q2

REPORT INFORMATION
  Report Type: 
  Country: None (occurrence: None)
  Receive Date: 20110401
  Receipt Date: 20110321
  Transmission Date: 20111010
  Serious: Yes (Other)
  Sender: FDA-Public Use
  Company Number: ES-MERCK-1006USA03556

PATIENT
  Age: 69 Year
  Sex: Female

DRUGS (1)
  1. [THERAPY UNSPECIFIED] [Suspect]
     Indication: HYPERTENSION
     Route: 048

REACTIONS (7)
  - DYSPHAGIA [None]
  - DYSPHONIA [None]
  - PRURITUS [None]
  - ANGIOEDEMA [None]
  - ERYTHEMA [None]
  - DYSPNOEA [None]
  - OROPHARYNGEAL PAIN [None]
